FAERS Safety Report 23302542 (Version 1)
Quarter: 2023Q4

REPORT INFORMATION
  Report Type: Report from Study
  Country: CH (occurrence: CH)
  Receive Date: 20231215
  Receipt Date: 20231215
  Transmission Date: 20240110
  Serious: Yes (Hospitalization)
  Sender: FDA-Public Use
  Company Number: None

PATIENT
  Age: 56 Year
  Sex: Female

DRUGS (14)
  1. REMERON [Suspect]
     Active Substance: MIRTAZAPINE
     Dosage: 300 MILLIGRAM
  2. LITHIUM SULFATE [Suspect]
     Active Substance: LITHIUM SULFATE
     Dosage: UNK
  3. LAMOTRIGINE [Suspect]
     Active Substance: LAMOTRIGINE
     Dosage: 3000 MILLIGRAM
  4. LYRICA [Suspect]
     Active Substance: PREGABALIN
     Dosage: 3500 MILLIGRAM
  5. PAROXETINE HYDROCHLORIDE [Suspect]
     Active Substance: PAROXETINE HYDROCHLORIDE\PAROXETINE HYDROCHLORIDE ANHYDROUS
     Dosage: 280 MILLIGRAM
  6. FLUOXETINE HYDROCHLORIDE [Suspect]
     Active Substance: FLUOXETINE HYDROCHLORIDE
     Dosage: 600 MILLIGRAM
  7. ROSUVASTATIN CALCIUM [Suspect]
     Active Substance: ROSUVASTATIN CALCIUM
     Dosage: 100 MILLIGRAM
  8. EUTHYROX [Suspect]
     Active Substance: LEVOTHYROXINE SODIUM
     Dosage: 1950 MICROGRAM
  9. XANAX [Suspect]
     Active Substance: ALPRAZOLAM
     Dosage: 5 MILLIGRAM
  10. PRAMIPEXOLE [Suspect]
     Active Substance: PRAMIPEXOLE
     Dosage: 2.5 MILLIGRAM
  11. CALCIUM\CHOLECALCIFEROL [Concomitant]
     Active Substance: CALCIUM\CHOLECALCIFEROL
     Dosage: UNK
  12. PANTOPRAZOLE SODIUM [Concomitant]
     Active Substance: PANTOPRAZOLE SODIUM
     Dosage: 40 MILLIGRAM
  13. MAGNESIUM DIASPORAL [MAGNESIUM] [Concomitant]
     Dosage: AS NECESSARY
  14. ALUCOL [ALUMINIUM HYDROXIDE;MAGNESIUM HYDROXIDE] [Concomitant]
     Dosage: AS NECESSARY

REACTIONS (6)
  - Toxicity to various agents [Recovering/Resolving]
  - Muscle spasms [Recovering/Resolving]
  - Bradypnoea [Recovering/Resolving]
  - Serotonin syndrome [Unknown]
  - Hallucination [Unknown]
  - Aspiration [Unknown]
